FAERS Safety Report 10670558 (Version 1)
Quarter: 2014Q4

REPORT INFORMATION
  Report Type: Spontaneous
  Country: MX (occurrence: None)
  Receive Date: 20141219
  Receipt Date: 20141219
  Transmission Date: 20150529
  Serious: Yes (Disabling)
  Sender: FDA-Public Use
  Company Number: A1081738A

PATIENT
  Age: 72 Year
  Sex: Female

DRUGS (3)
  1. PAROXETINE HYDROCHLORIDE TABLETS [Suspect]
     Active Substance: PAROXETINE HYDROCHLORIDE
     Indication: ANXIETY
     Route: 048
     Dates: start: 201401, end: 201403
  2. EXFORGE HCT (AMLODIPINE BESYLATE + HYDROCHLOROTHIAZIDE + VALSARTAN) [Concomitant]
  3. KETOROLAC [Concomitant]
     Active Substance: KETOROLAC\KETOROLAC TROMETHAMINE

REACTIONS (6)
  - Hernia [None]
  - Pain [None]
  - Condition aggravated [None]
  - Spinal disorder [None]
  - Immobile [None]
  - Sciatica [None]

NARRATIVE: CASE EVENT DATE: 201403
